FAERS Safety Report 15226590 (Version 1)
Quarter: 2018Q3

REPORT INFORMATION
  Report Type: Spontaneous
  Country: US (occurrence: US)
  Receive Date: 20180706
  Receipt Date: 20180706
  Transmission Date: 20181010
  Serious: Yes (Death)
  Sender: FDA-Public Use
  Company Number: None

PATIENT
  Age: 85 Year
  Sex: Female
  Weight: 63 kg

DRUGS (13)
  1. PREVICID [Concomitant]
  2. ELIQUIS [Suspect]
     Active Substance: APIXABAN
     Indication: ATRIAL FIBRILLATION
     Dosage: ?          QUANTITY:60 TABLET(S);?
     Route: 048
     Dates: start: 20171229, end: 20180118
  3. AMIODARONE (NEXTERONE) [Concomitant]
  4. MAGNESIUM OXIDE (MAG?OX) [Concomitant]
  5. CLONAZEPAM. [Concomitant]
     Active Substance: CLONAZEPAM
  6. MULTI VITAMINS [Concomitant]
     Active Substance: VITAMINS
  7. BENZODIAZAPINE LUCENTIS [Concomitant]
  8. BLOOD VESSEL GROWTH INHIBITOR [Concomitant]
  9. NORVASC [Suspect]
     Active Substance: AMLODIPINE BESYLATE
  10. ASPIRIN. [Concomitant]
     Active Substance: ASPIRIN
  11. CALCIUM [Concomitant]
     Active Substance: CALCIUM
  12. DILTIAZEM (CARDIZEM) [Concomitant]
  13. PROTON PUMP INHIBITOR [Concomitant]
     Active Substance: UNSPECIFIED INGREDIENT

REACTIONS (5)
  - Asthenia [None]
  - Atrial fibrillation [None]
  - Pneumothorax [None]
  - Gait disturbance [None]
  - Drug ineffective [None]

NARRATIVE: CASE EVENT DATE: 20180118
